FAERS Safety Report 13748696 (Version 1)
Quarter: 2017Q3

REPORT INFORMATION
  Report Type: Spontaneous
  Country: US (occurrence: US)
  Receive Date: 20170713
  Receipt Date: 20170713
  Transmission Date: 20171127
  Serious: Yes (Hospitalization)
  Sender: FDA-Public Use
  Company Number: US-APOTEX-2017AP015583

PATIENT
  Age: 57 Year
  Sex: Male

DRUGS (9)
  1. ZANAFLEX [Suspect]
     Active Substance: TIZANIDINE HYDROCHLORIDE
     Indication: MUSCLE SPASMS
     Dosage: 1 MG, AT BEDTIME
     Route: 065
  2. POLYMYXIN B. [Suspect]
     Active Substance: POLYMYXIN B
     Indication: INFECTION
     Dosage: 160 MG, UNK, LOADING DOSE
     Route: 042
  3. MEROPENEM. [Suspect]
     Active Substance: MEROPENEM
     Indication: WOUND INFECTION
     Dosage: 1 MG, EVERY 8 HOURS
     Route: 042
  4. COLISTIMETHATE SODIUM. [Suspect]
     Active Substance: COLISTIMETHATE SODIUM
     Indication: INFECTION
     Dosage: 3 MG/KG, QD
     Route: 042
  5. FLUCONAZOLE TABLETS [Suspect]
     Active Substance: FLUCONAZOLE
     Indication: WOUND INFECTION
     Dosage: 400 MG, QD
     Route: 048
  6. COLISTIN [Suspect]
     Active Substance: COLISTIN
     Indication: INFECTION
     Dosage: 3 MG/KG, QD, DIVIDED INTO 2 DOSES
     Route: 042
  7. POLYMYXIN B. [Suspect]
     Active Substance: POLYMYXIN B
     Dosage: 100 MG, BID
     Route: 042
  8. MEROPENEM. [Suspect]
     Active Substance: MEROPENEM
     Dosage: 2 G, EVERY 8 HOURS
     Route: 042
  9. ZANAFLEX [Suspect]
     Active Substance: TIZANIDINE HYDROCHLORIDE
     Dosage: 4 MG, EVERY 8 HOURS
     Route: 065

REACTIONS (1)
  - Eosinophil count increased [Recovering/Resolving]
